FAERS Safety Report 9965410 (Version 1)
Quarter: 2014Q1

REPORT INFORMATION
  Report Type: Report from Study
  Country: US (occurrence: US)
  Receive Date: 20140305
  Receipt Date: 20140305
  Transmission Date: 20141002
  Serious: No
  Sender: FDA-Public Use
  Company Number: US-ABBVIE-13P-163-1126473-00

PATIENT
  Age: 54 Year
  Sex: Female

DRUGS (8)
  1. HUMIRA [Suspect]
     Indication: RHEUMATOID ARTHRITIS
     Dates: start: 20130613
  2. CALCIUM [Concomitant]
     Indication: MINERAL SUPPLEMENTATION
  3. KLOR-CON [Concomitant]
     Indication: HYPOKALAEMIA
  4. MULTIVITAMIN [Concomitant]
     Indication: VITAMIN SUPPLEMENTATION
  5. PEPCID [Concomitant]
     Indication: DYSPEPSIA
  6. PREDNISONE [Concomitant]
     Indication: RHEUMATOID ARTHRITIS
  7. TOPROL [Concomitant]
     Indication: HYPERTENSION
  8. VITAMIN D3 [Concomitant]
     Indication: VITAMIN SUPPLEMENTATION

REACTIONS (3)
  - Dizziness [Recovered/Resolved]
  - Nausea [Recovered/Resolved]
  - Headache [Recovered/Resolved]
